FAERS Safety Report 5164253-7 (Version None)
Quarter: 2006Q4

REPORT INFORMATION
  Report Type: 
  Country: None (occurrence: None)
  Receive Date: 20060918
  Receipt Date: 20051011
  Transmission Date: 20070319
  Serious: Yes (Other)
  Sender: FDA-Public Use
  Company Number: US-JNJFOC-20051002720

PATIENT
  Age: 38 Year
  Sex: Female

DRUGS (2)
  1. TOPAMAX [Suspect]
     Indication: CONVULSION
     Dosage: 100 MG, 4 IN 1 DAY, ORAL
     Route: 048
     Dates: start: 20041001
  2. DURAGESIC-100 [Suspect]
     Indication: EOSINOPHILIA MYALGIA SYNDROME
     Dosage: 100 UG, 1 IN 2 DAY, TRANSDERMAL
     Route: 062
     Dates: start: 20041001

REACTIONS (6)
  - CONVULSION [None]
  - DEPRESSION [None]
  - DROOLING [None]
  - DRUG INEFFECTIVE [None]
  - SKIN CHAPPED [None]
  - SLEEP WALKING [None]
